FAERS Safety Report 8817338 (Version 1)
Quarter: 2012Q4

REPORT INFORMATION
  Report Type: 
  Country: US (occurrence: US)
  Receive Date: 20121004
  Receipt Date: 20121004
  Transmission Date: 20130627
  Serious: Yes (Other)
  Sender: FDA-Public Use
  Company Number: CHPA2012US020599

PATIENT
  Age: 86 Year
  Sex: Female

DRUGS (6)
  1. BENEFIBER STICK PACKS [Suspect]
     Indication: SUPPLEMENTATION THERAPY
     Dosage: Unk, Unk
     Route: 048
  2. DRUG THERAPY NOS [Suspect]
     Indication: PAIN
  3. BABY ASPIRIN [Concomitant]
     Dosage: 81 mg, QD
  4. CITALOPRAM [Concomitant]
     Indication: STRESS
     Dosage: 10 mg, QD
  5. VITAMINS                           /00067501/ [Concomitant]
     Dosage: UNK
  6. AMLODIPINE [Concomitant]
     Indication: BLOOD PRESSURE ABNORMAL
     Dosage: 2.5 mg, UNK

REACTIONS (5)
  - Pain [Unknown]
  - Abdominal pain upper [Unknown]
  - Malaise [Unknown]
  - Vision blurred [Unknown]
  - Feeling abnormal [Unknown]
